FAERS Safety Report 10763894 (Version 1)
Quarter: 2015Q1

REPORT INFORMATION
  Report Type: Other
  Country: US (occurrence: US)
  Receive Date: 20150204
  Receipt Date: 20150204
  Transmission Date: 20150721
  Serious: No
  Sender: FDA-Public Use
  Company Number: US-ACORDA-ACO_102619_2014

PATIENT
  Sex: Male
  Weight: 89.8 kg

DRUGS (8)
  1. TECFIDERA [Concomitant]
     Active Substance: DIMETHYL FUMARATE
     Indication: PRODUCT USED FOR UNKNOWN INDICATION
     Dosage: 240 MG, UNK
     Dates: start: 201305
  2. LOVASTATIN. [Concomitant]
     Active Substance: LOVASTATIN
     Indication: PRODUCT USED FOR UNKNOWN INDICATION
     Dosage: 20 MG, UNK
     Dates: start: 2011
  3. AMPYRA [Suspect]
     Active Substance: DALFAMPRIDINE
     Indication: BALANCE DISORDER
     Dosage: 10 MG, BID
     Route: 048
     Dates: end: 20140308
  4. LISINOPRIL. [Concomitant]
     Active Substance: LISINOPRIL
     Indication: PRODUCT USED FOR UNKNOWN INDICATION
     Dosage: 10 MG, UNK
     Dates: start: 2009
  5. AMPYRA [Suspect]
     Active Substance: DALFAMPRIDINE
     Indication: GAIT DISTURBANCE
     Dosage: 10 MG, BID
     Route: 048
     Dates: end: 2013
  6. HYDROCHLOROTHIAZIDE. [Concomitant]
     Active Substance: HYDROCHLOROTHIAZIDE
     Indication: PRODUCT USED FOR UNKNOWN INDICATION
     Dosage: 25 MG, UNK
     Dates: start: 2009
  7. METFORMIN [Concomitant]
     Active Substance: METFORMIN HYDROCHLORIDE
     Indication: PRODUCT USED FOR UNKNOWN INDICATION
     Dosage: 500 MG, UNK
  8. KLOR-CON [Concomitant]
     Active Substance: POTASSIUM CHLORIDE
     Indication: PRODUCT USED FOR UNKNOWN INDICATION
     Dosage: 20 MEQ, UNK
     Dates: start: 2011

REACTIONS (6)
  - Asthenia [Not Recovered/Not Resolved]
  - Muscular weakness [Recovered/Resolved]
  - Balance disorder [Recovering/Resolving]
  - Fatigue [Not Recovered/Not Resolved]
  - Pain in extremity [Recovered/Resolved]
  - Frustration [Not Recovered/Not Resolved]

NARRATIVE: CASE EVENT DATE: 2013
